FAERS Safety Report 8422224 (Version 7)
Quarter: 2013Q3

REPORT INFORMATION
  Report Type: Report from Study
  Country: US (occurrence: US)
  Receive Date: 20120223
  Receipt Date: 20130821
  Transmission Date: 20140515
  Serious: Yes (Hospitalization, Other)
  Sender: FDA-Public Use
  Company Number: US-JNJFOC-20120206721

PATIENT
  Sex: Male

DRUGS (2)
  1. SIMPONI [Suspect]
     Indication: RHEUMATOID ARTHRITIS
     Route: 058
  2. SIMPONI [Suspect]
     Indication: RHEUMATOID ARTHRITIS
     Route: 058

REACTIONS (6)
  - Fall [Recovering/Resolving]
  - Knee arthroplasty [Not Recovered/Not Resolved]
  - Staphylococcal infection [Not Recovered/Not Resolved]
  - Rheumatoid arthritis [Recovering/Resolving]
  - Therapeutic response delayed [Not Recovered/Not Resolved]
  - Depression [Recovering/Resolving]
